FAERS Safety Report 9167435 (Version 1)
Quarter: 2013Q1

REPORT INFORMATION
  Report Type: Spontaneous
  Country: US (occurrence: None)
  Receive Date: 20130304
  Receipt Date: 20130304
  Transmission Date: 20140127
  Serious: Yes (Other)
  Sender: FDA-Public Use
  Company Number: 2013P1002679

PATIENT
  Sex: 0

DRUGS (5)
  1. PROPRANOLOL [Suspect]
     Indication: GROWTH ACCELERATED
     Dosage: DIVIDED
  2. PROPRANOLOL [Suspect]
     Indication: RESPIRATORY DISORDER
     Dosage: DIVIDED
  3. PROPRANOLOL [Suspect]
     Indication: FACIAL NERVE DISORDER
     Dosage: DIVIDED
  4. PROPRANOLOL [Suspect]
     Indication: ULCER
     Dosage: DIVIDED
  5. CORTICOSTERIOD [Concomitant]

REACTIONS (2)
  - Skin ulcer [None]
  - Necrosis [None]
